FAERS Safety Report 8792503 (Version 2)
Quarter: 2012Q4

REPORT INFORMATION
  Report Type: 
  Country: US (occurrence: US)
  Receive Date: 20120918
  Receipt Date: 20121009
  Transmission Date: 20130627
  Serious: Yes (Other)
  Sender: FDA-Public Use
  Company Number: PHEH2012US017889

PATIENT
  Age: 47 Year
  Sex: Female

DRUGS (7)
  1. GILENYA [Suspect]
     Indication: MULTIPLE SCLEROSIS
     Dosage: 0.5 mg, QD
     Route: 048
     Dates: start: 20120911
  2. NUVIGIL [Suspect]
  3. LEXAPRO [Concomitant]
  4. XANAX [Concomitant]
  5. PERCOCET [Concomitant]
  6. VITAMINS [Concomitant]
  7. MOUIC [Concomitant]

REACTIONS (6)
  - Atrioventricular block first degree [Recovered/Resolved]
  - Blood pressure decreased [Recovering/Resolving]
  - Heart rate decreased [Unknown]
  - Psychomotor hyperactivity [Unknown]
  - Fatigue [Recovering/Resolving]
  - Palpitations [Recovering/Resolving]
